FAERS Safety Report 15021235 (Version 5)
Quarter: 2018Q4

REPORT INFORMATION
  Report Type: Report from Study
  Country: PL (occurrence: PL)
  Receive Date: 20180618
  Receipt Date: 20181129
  Transmission Date: 20190204
  Serious: Yes (Death, Life-Threatening, Hospitalization)
  Sender: FDA-Public Use
  Company Number: PL-AMGEN-POLCT2018021753

PATIENT
  Age: 67 Year
  Sex: Male

DRUGS (11)
  1. DEXAMETHASONE. [Suspect]
     Active Substance: DEXAMETHASONE
     Indication: PLASMA CELL MYELOMA
     Dosage: 40 MG, PER CHEMO REGIM
     Route: 048
     Dates: start: 20160601, end: 20180123
  2. OMEPRAZOLUM [Concomitant]
     Dosage: 20 MG, UNK
     Route: 048
     Dates: start: 20160601, end: 20180317
  3. ACYCLOVIR. [Concomitant]
     Active Substance: ACYCLOVIR
     Dosage: 400 MG, UNK
     Route: 048
     Dates: start: 20160711, end: 20180317
  4. CARFILZOMIB [Suspect]
     Active Substance: CARFILZOMIB
     Indication: PLASMA CELL MYELOMA
     Dosage: 133 MG, PER CHEMO REGIM
     Route: 042
     Dates: start: 20160601, end: 20180123
  5. PREGABALIN. [Concomitant]
     Active Substance: PREGABALIN
     Dosage: 150 MG, UNK
     Route: 048
     Dates: start: 201502, end: 20180317
  6. VITAMIN B1+B6+B12 [Concomitant]
     Dosage: 1 UNK, UNK
     Route: 048
     Dates: start: 201502, end: 20180317
  7. ASPIRIN. [Concomitant]
     Active Substance: ASPIRIN
     Dosage: 100 MG, UNK
     Route: 048
     Dates: start: 201502, end: 20180317
  8. ROSUVASTATIN. [Concomitant]
     Active Substance: ROSUVASTATIN
     Dosage: 20 MG, UNK
     Route: 048
     Dates: start: 20170522, end: 20180317
  9. NEBILET [Concomitant]
     Active Substance: NEBIVOLOL
     Dosage: 2.5 UNK, UNK
     Route: 048
     Dates: start: 20170216, end: 20180317
  10. ACETYLSALICYLIC ACID [Concomitant]
     Active Substance: ASPIRIN
     Dosage: 75 MG, UNK
     Route: 048
     Dates: start: 20170216, end: 20180317
  11. TRITACE [Concomitant]
     Active Substance: RAMIPRIL
     Dosage: 2.5 MG, UNK
     Route: 048
     Dates: start: 20170216, end: 20180317

REACTIONS (4)
  - Bronchitis [Recovered/Resolved]
  - Upper respiratory tract infection [Recovered/Resolved]
  - Myocardial infarction [Fatal]
  - Staphylococcal sepsis [Recovered/Resolved]

NARRATIVE: CASE EVENT DATE: 20180127
